FAERS Safety Report 10833524 (Version 2)
Quarter: 2015Q2

REPORT INFORMATION
  Report Type: Report from Study
  Country: US (occurrence: US)
  Receive Date: 20150219
  Receipt Date: 20150430
  Transmission Date: 20150821
  Serious: Yes (Death, Other)
  Sender: FDA-Public Use
  Company Number: US-GILEAD-2015-0137441

PATIENT
  Age: 68 Year
  Sex: Female
  Weight: 82.99 kg

DRUGS (17)
  1. ASMANEX [Concomitant]
     Active Substance: MOMETASONE FUROATE
     Dosage: 220 UG, QD
     Route: 055
     Dates: start: 20131207
  2. SPIRIVA [Concomitant]
     Active Substance: TIOTROPIUM BROMIDE MONOHYDRATE
     Dosage: 18 UG, QD
     Route: 055
     Dates: start: 20130208
  3. DIGOX                              /00017701/ [Concomitant]
     Dosage: 0.125 MG, QD
     Route: 048
     Dates: start: 20130208
  4. POTASSIUM CHLORIDE. [Concomitant]
     Active Substance: POTASSIUM CHLORIDE
     Dosage: 10 MEQ, QD
     Route: 048
     Dates: start: 20130208
  5. FUROSEMIDE. [Concomitant]
     Active Substance: FUROSEMIDE
     Dosage: 80 MG, BID
     Route: 048
     Dates: start: 20130208
  6. GABAPENTIN. [Concomitant]
     Active Substance: GABAPENTIN
     Dosage: 600 MG, TID
     Route: 048
     Dates: start: 20130311
  7. LOPERAMIDE [Concomitant]
     Active Substance: LOPERAMIDE
     Dosage: 2 MG, PRN
     Dates: start: 20130508
  8. OXYGEN. [Concomitant]
     Active Substance: OXYGEN
  9. REMODULIN [Suspect]
     Active Substance: TREPROSTINIL
     Dosage: 92 NG/KG/MIN
     Route: 058
     Dates: start: 2014
  10. ADEMPAS [Suspect]
     Active Substance: RIOCIGUAT
     Indication: PULMONARY ARTERIAL HYPERTENSION
     Dosage: 0.5 MG, UNK
     Route: 065
     Dates: start: 201408
  11. ACETAMINOPHEN W/HYDROCODONE [Concomitant]
     Active Substance: ACETAMINOPHEN\HYDROCODONE
     Dosage: 1-2 TABLETS, Q4HR
     Route: 048
     Dates: start: 20140113
  12. AMBRISENTAN [Suspect]
     Active Substance: AMBRISENTAN
     Indication: PRODUCT USED FOR UNKNOWN INDICATION
     Dosage: 10 MG, UNK
     Route: 065
     Dates: start: 20121023, end: 2014
  13. REMODULIN [Suspect]
     Active Substance: TREPROSTINIL
     Indication: PULMONARY ARTERIAL HYPERTENSION
     Dosage: 0.090 UG/KG, UNK
     Route: 058
     Dates: start: 20121101
  14. COUMADIN [Suspect]
     Active Substance: WARFARIN SODIUM
     Indication: PRODUCT USED FOR UNKNOWN INDICATION
     Dosage: 5 MG, UNK
     Route: 065
  15. SPIRONOLACTONE. [Concomitant]
     Active Substance: SPIRONOLACTONE
     Dosage: 25 MG, QD
     Route: 048
     Dates: start: 20130208
  16. LEVOTHYROXINE [Concomitant]
     Active Substance: LEVOTHYROXINE
     Dosage: 175 UG, UNK
     Dates: start: 20121102
  17. BUPROPION [Concomitant]
     Active Substance: BUPROPION
     Dosage: 300 MG, UNK
     Dates: start: 20120912

REACTIONS (18)
  - Pulmonary arterial hypertension [Fatal]
  - Balance disorder [Unknown]
  - Hernia [Not Recovered/Not Resolved]
  - Ear pain [Unknown]
  - Tachycardia [Unknown]
  - Nasal congestion [Unknown]
  - Nausea [Not Recovered/Not Resolved]
  - Infusion site pain [Unknown]
  - Muscle spasms [Not Recovered/Not Resolved]
  - Feeling abnormal [Not Recovered/Not Resolved]
  - Headache [Unknown]
  - Abdominal pain upper [Not Recovered/Not Resolved]
  - Fatigue [Unknown]
  - Cataract [Unknown]
  - Contusion [Unknown]
  - Right ventricular failure [Unknown]
  - Decreased appetite [Unknown]
  - Diarrhoea [Not Recovered/Not Resolved]

NARRATIVE: CASE EVENT DATE: 201412
